FAERS Safety Report 20851596 (Version 3)
Quarter: 2022Q2

REPORT INFORMATION
  Report Type: Spontaneous
  Country: CA (occurrence: CA)
  Receive Date: 20220520
  Receipt Date: 20220624
  Transmission Date: 20220720
  Serious: Yes (Other)
  Sender: FDA-Public Use
  Company Number: CA-CELLTRION INC.-2021CA017907

PATIENT

DRUGS (12)
  1. INFLECTRA [Suspect]
     Active Substance: INFLIXIMAB-DYYB
     Indication: Colitis ulcerative
     Dosage: 500 MG, WEEK 0, 2, 6 AND THEN EVERY 8 WEEKS
     Route: 042
     Dates: start: 20210909
  2. INFLECTRA [Suspect]
     Active Substance: INFLIXIMAB-DYYB
     Dosage: 500 MG, WEEK 0, 2, 6 AND THEN EVERY 8 WEEKS,  WEEK 0 DOSE AT HOSPITAL
     Route: 042
     Dates: start: 20210909, end: 20211221
  3. INFLECTRA [Suspect]
     Active Substance: INFLIXIMAB-DYYB
     Dosage: 500 MG, WEEK 0, 2, 6 AND THEN EVERY 8 WEEKS
     Route: 042
     Dates: start: 20210925
  4. INFLECTRA [Suspect]
     Active Substance: INFLIXIMAB-DYYB
     Dosage: 500 MG, WEEK 0, 2, 6 AND THEN EVERY 8 WEEKS
     Route: 042
     Dates: start: 20211023
  5. INFLECTRA [Suspect]
     Active Substance: INFLIXIMAB-DYYB
     Dosage: 500 MG, WEEK 0, 2, 6 AND THEN EVERY 8 WEEKS
     Route: 042
     Dates: start: 20211221
  6. INFLECTRA [Suspect]
     Active Substance: INFLIXIMAB-DYYB
     Dosage: 900 MG (10 MG/KG. Q0,2,6 WEEKS, THEN EVERY 6 WEEKS REINDUCTION. WEEK 0 RECEIVED IN HOSPITAL )
     Route: 042
     Dates: start: 2022, end: 20220504
  7. INFLECTRA [Suspect]
     Active Substance: INFLIXIMAB-DYYB
     Dosage: 900 MG (10 MG/KG. Q0,2,6 WEEKS, THEN EVERY 6 WEEKS REINDUCTION. WEEK 0 RECEIVED IN HOSPITAL )
     Route: 042
     Dates: start: 20220223
  8. INFLECTRA [Suspect]
     Active Substance: INFLIXIMAB-DYYB
     Dosage: 900 MG (10 MG/KG. Q0,2,6 WEEKS, THEN EVERY 6 WEEKS REINDUCTION. WEEK 0 RECEIVED IN HOSPITAL )
     Route: 042
     Dates: start: 20220323
  9. INFLECTRA [Suspect]
     Active Substance: INFLIXIMAB-DYYB
     Dosage: 900 MG (10 MG/KG. Q0,2,6 WEEKS, THEN EVERY 6 WEEKS REINDUCTION. WEEK 0 RECEIVED IN HOSPITAL )
     Route: 042
     Dates: start: 20220504
  10. ENEMA [SODIUM CHLORIDE] [Concomitant]
     Dosage: 1 DF, DOSE UNK
     Route: 065
  11. PANTOPRAZOLE [Concomitant]
     Active Substance: PANTOPRAZOLE
     Dosage: 1 DF, DOSE UNK
     Route: 065
  12. PREDNISONE [Concomitant]
     Active Substance: PREDNISONE
     Dosage: 1 DF, DOSE UNK
     Route: 065

REACTIONS (9)
  - Pruritus [Recovered/Resolved]
  - Drug ineffective [Unknown]
  - Off label use [Unknown]
  - Off label use [Unknown]
  - Arthralgia [Recovering/Resolving]
  - Condition aggravated [Not Recovered/Not Resolved]
  - Swelling [Unknown]
  - Diarrhoea [Recovering/Resolving]
  - Weight decreased [Unknown]

NARRATIVE: CASE EVENT DATE: 20210101
